FAERS Safety Report 4476956-8 (Version None)
Quarter: 2004Q4

REPORT INFORMATION
  Report Type: 
  Country: None (occurrence: None)
  Receive Date: 20041012
  Receipt Date: 20041001
  Transmission Date: 20050328
  Serious: Yes (Other)
  Sender: FDA-Public Use
  Company Number: 163-20785-04100141

PATIENT
  Sex: Female

DRUGS (1)
  1. THALOMID [Suspect]
     Indication: SARCOMA
     Dosage: 200 MG PO EVERY NIGHT AT BEDTIME, ORAL
     Route: 048

REACTIONS (11)
  - ABDOMINAL PAIN [None]
  - ACTIVATED PARTIAL THROMBOPLASTIN TIME PROLONGED [None]
  - CARDIAC DISORDER [None]
  - CONSTIPATION [None]
  - FATIGUE [None]
  - GASTROINTESTINAL DISORDER [None]
  - INTERNATIONAL NORMALISED RATIO INCREASED [None]
  - NAUSEA [None]
  - OEDEMA [None]
  - PLATELET DISORDER [None]
  - VOMITING [None]
